FAERS Safety Report 19826946 (Version 2)
Quarter: 2021Q4

REPORT INFORMATION
  Report Type: Spontaneous
  Country: GB (occurrence: GB)
  Receive Date: 20210914
  Receipt Date: 20211024
  Transmission Date: 20220303
  Serious: Yes (Other)
  Sender: FDA-Public Use
  Company Number: NVSC2021GB201283

PATIENT
  Sex: Female

DRUGS (1)
  1. TEGRETOL [Suspect]
     Active Substance: CARBAMAZEPINE
     Indication: Epilepsy
     Dosage: UNK
     Route: 065
     Dates: start: 1976

REACTIONS (4)
  - Tunnel vision [Recovered/Resolved]
  - Seizure [Recovered/Resolved]
  - Ill-defined disorder [Recovered/Resolved]
  - Product label confusion [Recovered/Resolved]
